FAERS Safety Report 24888449 (Version 1)
Quarter: 2025Q1

REPORT INFORMATION
  Report Type: Spontaneous
  Country: GB (occurrence: GB)
  Receive Date: 20250127
  Receipt Date: 20250127
  Transmission Date: 20250409
  Serious: Yes (Hospitalization, Other)
  Sender: GENMAB
  Company Number: GB-ABBVIE-6099624

PATIENT
  Age: 70 Year
  Sex: Female

DRUGS (1)
  1. EPCORITAMAB [Suspect]
     Active Substance: EPCORITAMAB
     Indication: Diffuse large B-cell lymphoma recurrent
     Route: 058

REACTIONS (2)
  - Deep vein thrombosis [Unknown]
  - Lymphoma [Unknown]
